FAERS Safety Report 6419968-7 (Version None)
Quarter: 2009Q4

REPORT INFORMATION
  Report Type: 
  Country: None (occurrence: None)
  Receive Date: 20091029
  Receipt Date: 20091005
  Transmission Date: 20100525
  Serious: No
  Sender: FDA-Public Use
  Company Number: US-JNJFOC-20091002157

PATIENT
  Sex: Male

DRUGS (3)
  1. INVEGA SUSTENNA [Suspect]
     Indication: SCHIZOPHRENIA
     Route: 030
  2. INVEGA [Suspect]
     Indication: SCHIZOPHRENIA
     Route: 048
  3. PROLIXIN [Concomitant]

REACTIONS (1)
  - SOMNOLENCE [None]
